FAERS Safety Report 9298131 (Version 1)
Quarter: 2012Q4

REPORT INFORMATION
  Report Type: Spontaneous
  Country: US (occurrence: None)
  Receive Date: 20121031
  Receipt Date: 20121031
  Transmission Date: 20130627
  Serious: Yes (Other)
  Sender: FDA-Public Use
  Company Number: OTH-PAT-2012007

PATIENT
  Age: 4 Year
  Sex: Male

DRUGS (3)
  1. CYSTADANE [Suspect]
     Indication: METABOLIC DISORDER
     Dates: start: 20080806, end: 20121007
  2. CYSTADANE [Suspect]
     Indication: METABOLIC DISORDER
     Dates: start: 20121008
  3. CYSTADANE [Suspect]
     Indication: METABOLIC DISORDER

REACTIONS (6)
  - Blood homocysteine increased [None]
  - Drug ineffective [None]
  - Anger [None]
  - Agitation [None]
  - Mood altered [None]
  - Treatment noncompliance [None]
